FAERS Safety Report 13288219 (Version 1)
Quarter: 2017Q1

REPORT INFORMATION
  Report Type: Not Available
  Country: TR (occurrence: TR)
  Receive Date: 20170302
  Receipt Date: 20170302
  Transmission Date: 20170428
  Serious: Yes (Other)
  Sender: FDA-Public Use
  Company Number: TR--2017-TR-000005

PATIENT
  Age: 3 Year
  Sex: Male

DRUGS (1)
  1. METRONIDAZOLE BRAND UNSPECIFIED (VIVIMED) [Suspect]
     Active Substance: METRONIDAZOLE
     Indication: AMOEBIASIS
     Route: 048

REACTIONS (5)
  - Blindness [Recovered/Resolved]
  - Vertigo [None]
  - Headache [None]
  - Dizziness [None]
  - Ataxia [None]
